FAERS Safety Report 22357554 (Version 4)
Quarter: 2023Q4

REPORT INFORMATION
  Report Type: Report from Study
  Country: US (occurrence: US)
  Receive Date: 20230524
  Receipt Date: 20231027
  Transmission Date: 20240110
  Serious: Yes (Disabling, Other)
  Sender: FDA-Public Use
  Company Number: US-RECORDATI RARE DISEASE INC.-2023003114

PATIENT

DRUGS (4)
  1. CYSTADROPS [Suspect]
     Active Substance: CYSTEAMINE HYDROCHLORIDE
     Indication: Cystinosis
     Dosage: 1 GTT DROP (EACH EYE), QID
     Route: 047
     Dates: start: 20210601
  2. CYSTADROPS [Suspect]
     Active Substance: CYSTEAMINE HYDROCHLORIDE
     Dosage: 2 GTT DROPS (1 GTT DROP IN EACH EYE), QID
     Route: 047
  3. CYSTAGON [Suspect]
     Active Substance: CYSTEAMINE BITARTRATE
     Indication: Product used for unknown indication
     Dosage: UNK
  4. CYSTARAN [Suspect]
     Active Substance: CYSTEAMINE HYDROCHLORIDE
     Indication: Product used for unknown indication
     Dosage: 1 GTT DROPS, QH
     Route: 047

REACTIONS (5)
  - Eye oedema [Unknown]
  - Corneal transplant [Recovering/Resolving]
  - Retinal injury [Recovering/Resolving]
  - Eye inflammation [Recovering/Resolving]
  - Retinal detachment [Recovering/Resolving]

NARRATIVE: CASE EVENT DATE: 20230101
